FAERS Safety Report 5354439-0 (Version None)
Quarter: 2007Q2

REPORT INFORMATION
  Report Type: 
  Country: None (occurrence: None)
  Receive Date: 20070612
  Receipt Date: 20070516
  Transmission Date: 20071010
  Serious: Yes (Hospitalization)
  Sender: FDA-Public Use
  Company Number: GB-SHR-GB-2007-021243

PATIENT

DRUGS (1)
  1. BETASERON [Suspect]
     Route: 058

REACTIONS (1)
  - ENTEROCOLITIS VIRAL [None]
